FAERS Safety Report 6368777-6 (Version None)
Quarter: 2009Q3

REPORT INFORMATION
  Report Type: 
  Country: None (occurrence: None)
  Receive Date: 20090917
  Receipt Date: 20090917
  Transmission Date: 20100115
  Serious: No
  Sender: FDA-Public Use
  Company Number: None

PATIENT

DRUGS (2)
  1. HURRICAINE SPRAY -BENZOCAINE- [Suspect]
     Dosage: PO
     Route: 048
  2. DERMOPLASAT -BENZOCAINE- [Suspect]
     Dosage: TOP
     Route: 061

REACTIONS (2)
  - DRUG DISPENSING ERROR [None]
  - INTERCEPTED DRUG ADMINISTRATION ERROR [None]
